FAERS Safety Report 7236379-5 (Version None)
Quarter: 2011Q1

REPORT INFORMATION
  Report Type: 
  Country: None (occurrence: None)
  Receive Date: 20110120
  Receipt Date: 20110110
  Transmission Date: 20110831
  Serious: Yes (Other)
  Sender: FDA-Public Use
  Company Number: GB-WATSON-2011-00554

PATIENT
  Age: 65 Year
  Sex: Male

DRUGS (6)
  1. MYCOPHENOLATE MOFETIL [Suspect]
     Indication: RENAL VASCULITIS
     Dosage: 1 G, BID
     Route: 065
     Dates: start: 20100201
  2. MYCOPHENOLATE MOFETIL [Suspect]
     Dosage: 1 G, BID
     Route: 065
     Dates: start: 20080701, end: 20080901
  3. RITUXIMAB [Suspect]
     Dosage: 375 MG/M2, 1/WEEK X 4 WEEKS
     Route: 065
     Dates: start: 20080901, end: 20081001
  4. PREDNISOLONE [Suspect]
     Dosage: 80 MG, UNKNOWN
     Route: 065
     Dates: start: 20071101
  5. RITUXIMAB [Suspect]
     Indication: RENAL VASCULITIS
     Dosage: UNK
     Route: 065
     Dates: start: 20090501, end: 20091201
  6. PREDNISOLONE [Suspect]
     Indication: RENAL VASCULITIS
     Dosage: 25 MG, UNKNOWN
     Route: 065
     Dates: start: 20080901

REACTIONS (4)
  - MYELITIS TRANSVERSE [None]
  - LOWER RESPIRATORY TRACT INFECTION [None]
  - VASCULITIS [None]
  - CUSHING'S SYNDROME [None]
